FAERS Safety Report 10945018 (Version 1)
Quarter: 2015Q1

REPORT INFORMATION
  Report Type: Spontaneous
  Country: US (occurrence: US)
  Receive Date: 20150323
  Receipt Date: 20150323
  Transmission Date: 20150721
  Serious: No
  Sender: FDA-Public Use
  Company Number: US-009507513-1503USA004613

PATIENT
  Age: 76 Year
  Sex: Female

DRUGS (2)
  1. ASMANEX [Suspect]
     Active Substance: MOMETASONE FUROATE
     Dosage: 1 DF (PUFF), BID
     Route: 055
     Dates: start: 20150302
  2. ASMANEX [Suspect]
     Active Substance: MOMETASONE FUROATE
     Indication: ASTHMA
     Dosage: STRENGTH: 220 Y, 2 PUFFS(DF), BID
     Route: 055
     Dates: start: 201502, end: 20150301

REACTIONS (4)
  - Product quality issue [Unknown]
  - Cough [Unknown]
  - Drug dose omission [Unknown]
  - Chest discomfort [Unknown]

NARRATIVE: CASE EVENT DATE: 20150302
